FAERS Safety Report 7998981-2 (Version None)
Quarter: 2011Q4

REPORT INFORMATION
  Report Type: 
  Country: None (occurrence: None)
  Receive Date: 20111221
  Receipt Date: 20111221
  Transmission Date: 20120403
  Serious: Yes (Other)
  Sender: FDA-Public Use
  Company Number: US-ABBOTT-11P-163-0867540-00

PATIENT
  Sex: Female
  Weight: 87.4 kg

DRUGS (1)
  1. HUMIRA [Suspect]
     Indication: CROHN'S DISEASE
     Dates: start: 20070902

REACTIONS (4)
  - ARTHRITIS [None]
  - HYPERTENSION [None]
  - CAECITIS [None]
  - DRUG INEFFECTIVE [None]
